FAERS Safety Report 9734689 (Version 3)
Quarter: 2014Q1

REPORT INFORMATION
  Report Type: Report from Study
  Country: FR (occurrence: FR)
  Receive Date: 20131206
  Receipt Date: 20140107
  Transmission Date: 20141002
  Serious: Yes (Other)
  Sender: FDA-Public Use
  Company Number: FR-ROCHE-1312065

PATIENT
  Sex: 0

DRUGS (2)
  1. INTERFERON ALFA-2A [Suspect]
     Indication: B-CELL LYMPHOMA RECURRENT
     Route: 058
  2. RITUXIMAB [Suspect]
     Indication: B-CELL LYMPHOMA RECURRENT
     Route: 065

REACTIONS (13)
  - Hepatocellular injury [Unknown]
  - Pancytopenia [Unknown]
  - Cardiac failure [Unknown]
  - Hypothyroidism [Unknown]
  - Cholestasis [Unknown]
  - Urinary tract infection [Unknown]
  - Back pain [Unknown]
  - Alopecia [Unknown]
  - Influenza like illness [Unknown]
  - Depression [Unknown]
  - Abnormal behaviour [Unknown]
  - Arthralgia [Unknown]
  - Off label use [Unknown]
